FAERS Safety Report 7288736 (Version 6)
Quarter: 2014Q2

REPORT INFORMATION
  Report Type: Report from Study
  Country: DE (occurrence: DE)
  Receive Date: 20100222
  Receipt Date: 20140502
  Transmission Date: 20141212
  Serious: Yes (Other)
  Sender: FDA-Public Use
  Company Number: DE-JNJFOC-20100206215

PATIENT
  Age: 55 Year
  Sex: Female
  Weight: 95 kg

DRUGS (4)
  1. REMICADE [Suspect]
     Indication: COLITIS ULCERATIVE
     Route: 042
     Dates: start: 20090827, end: 20100211
  2. SALOFALK [Concomitant]
     Indication: COLITIS ULCERATIVE
     Route: 048
     Dates: start: 20100216
  3. SALOFALK [Concomitant]
     Indication: COLITIS ULCERATIVE
     Route: 048
     Dates: start: 2005
  4. CORTISON [Concomitant]
     Indication: COLITIS ULCERATIVE
     Route: 048
     Dates: start: 20100216

REACTIONS (1)
  - Pemphigoid [Recovered/Resolved]
